FAERS Safety Report 15550291 (Version 4)
Quarter: 2019Q3

REPORT INFORMATION
  Report Type: Spontaneous
  Country: US (occurrence: US)
  Receive Date: 20181025
  Receipt Date: 20190703
  Transmission Date: 20191004
  Serious: Yes (Hospitalization, Other)
  Sender: FDA-Public Use
  Company Number: US-STRONGBRIDGE BIOPHARMA-2018-STR-000359

PATIENT
  Age: 59 Year
  Sex: Female

DRUGS (3)
  1. KEVEYIS [Suspect]
     Active Substance: DICHLORPHENAMIDE
     Dosage: 1 TABLET TWICE DAILY
     Route: 048
     Dates: end: 201906
  2. KEVEYIS [Suspect]
     Active Substance: DICHLORPHENAMIDE
     Indication: FAMILIAL PERIODIC PARALYSIS
     Dosage: UNK
     Route: 048
     Dates: start: 20170428
  3. KEVEYIS [Suspect]
     Active Substance: DICHLORPHENAMIDE
     Dosage: 1.5 MG, BID
     Route: 048
     Dates: start: 201906

REACTIONS (19)
  - Weight decreased [Not Recovered/Not Resolved]
  - Vomiting [Unknown]
  - Speech disorder [Unknown]
  - Electrocardiogram QT prolonged [Unknown]
  - Paraesthesia [Unknown]
  - Malaise [Not Recovered/Not Resolved]
  - Decreased appetite [Not Recovered/Not Resolved]
  - Muscular weakness [Unknown]
  - Paraesthesia [Recovering/Resolving]
  - Paraesthesia [Not Recovered/Not Resolved]
  - Diarrhoea [Unknown]
  - Dyspnoea [Unknown]
  - Blood potassium decreased [Unknown]
  - Colitis ulcerative [Unknown]
  - Gastrointestinal disorder [Unknown]
  - Nasopharyngitis [Unknown]
  - Asthenia [Unknown]
  - Blood potassium decreased [Unknown]
  - Malaise [Unknown]

NARRATIVE: CASE EVENT DATE: 20181010
